FAERS Safety Report 7985536-9 (Version None)
Quarter: 2011Q4

REPORT INFORMATION
  Report Type: 
  Country: None (occurrence: None)
  Receive Date: 20111216
  Receipt Date: 20111206
  Transmission Date: 20120403
  Serious: Yes (Hospitalization)
  Sender: FDA-Public Use
  Company Number: US-ABBOTT-11P-163-0881217-00

PATIENT
  Sex: Male

DRUGS (2)
  1. PENTASA [Concomitant]
     Indication: CROHN'S DISEASE
     Dates: start: 20070101
  2. HUMIRA [Suspect]
     Indication: CROHN'S DISEASE
     Dosage: INDUCTION: 160 MG (BASELINE) / 80 MG (WEEK 2)
     Route: 058
     Dates: start: 20081118

REACTIONS (1)
  - SMALL INTESTINAL OBSTRUCTION [None]
